FAERS Safety Report 18664000 (Version 2)
Quarter: 2020Q4

REPORT INFORMATION
  Report Type: Report from Study
  Country: NL (occurrence: NL)
  Receive Date: 20201225
  Receipt Date: 20201226
  Transmission Date: 20210114
  Serious: Yes (Death)
  Sender: FDA-Public Use
  Company Number: NL-ROCHE-2738158

PATIENT
  Sex: Female

DRUGS (3)
  1. RITUXIMAB. [Suspect]
     Active Substance: RITUXIMAB
     Indication: CHRONIC LYMPHOCYTIC LEUKAEMIA
     Dosage: DATE OF MOST RECENT DOSE PRIOR TO SAE: 11/MAR/2015
     Route: 065
     Dates: start: 20141021, end: 20150311
  2. CHLORAMBUCIL [Suspect]
     Active Substance: CHLORAMBUCIL
     Indication: CHRONIC LYMPHOCYTIC LEUKAEMIA
     Dosage: MOST RECENT DOSE PRIOR TO SAE: 18/MAR/2015 12 MG?EACH 28-DAY CYCLE FOR A TOTAL DURATION OF 12 MONTHS
     Route: 048
     Dates: start: 20141021, end: 20150318
  3. LENALIDOMIDE [Suspect]
     Active Substance: LENALIDOMIDE
     Indication: CHRONIC LYMPHOCYTIC LEUKAEMIA
     Dosage: MOST RECENT DOSE PRIOR TO SAE: 22/SEP/2015
     Route: 065
     Dates: start: 20141029, end: 20150922

REACTIONS (1)
  - Bladder squamous cell carcinoma stage unspecified [Fatal]

NARRATIVE: CASE EVENT DATE: 20191029
